FAERS Safety Report 6101775-6 (Version None)
Quarter: 2009Q1

REPORT INFORMATION
  Report Type: 
  Country: None (occurrence: None)
  Receive Date: 20090227
  Receipt Date: 20080220
  Transmission Date: 20090719
  Serious: Yes (Disabling)
  Sender: FDA-Public Use
  Company Number: 256407

PATIENT
  Age: 10 Year
  Sex: Female
  Weight: 45.6 kg

DRUGS (2)
  1. NUTROPIN AQ [Suspect]
     Indication: TURNER'S SYNDROME
     Dosage: 2 MG, 7/WEEK
     Dates: start: 20071005, end: 20080205
  2. LEVOXYL (LEVOTHYROXINE SODUIM) [Concomitant]

REACTIONS (1)
  - DIABETES MELLITUS [None]
